FAERS Safety Report 15962263 (Version 1)
Quarter: 2019Q1

REPORT INFORMATION
  Report Type: Spontaneous
  Country: US (occurrence: US)
  Receive Date: 20190214
  Receipt Date: 20190214
  Transmission Date: 20190417
  Serious: Yes (Death, Life-Threatening, Other)
  Sender: FDA-Public Use
  Company Number: US-PFIZER INC-2019066592

PATIENT
  Age: 48 Year
  Sex: Female
  Weight: 105.67 kg

DRUGS (1)
  1. TIKOSYN [Suspect]
     Active Substance: DOFETILIDE
     Indication: ATRIAL FIBRILLATION
     Dosage: UNK
     Dates: start: 20170103

REACTIONS (7)
  - Ventricular tachycardia [Fatal]
  - Torsade de pointes [Fatal]
  - Ventricular fibrillation [Unknown]
  - Contraindicated product administered [Fatal]
  - Hypoxic-ischaemic encephalopathy [Unknown]
  - Cardiac arrest [Unknown]
  - Drug ineffective [Fatal]

NARRATIVE: CASE EVENT DATE: 20170103
